FAERS Safety Report 19096421 (Version 1)
Quarter: 2021Q2

REPORT INFORMATION
  Report Type: Spontaneous
  Country: US (occurrence: US)
  Receive Date: 20210405
  Receipt Date: 20210405
  Transmission Date: 20210717
  Serious: No
  Sender: FDA-Public Use
  Company Number: None

PATIENT
  Sex: Female

DRUGS (2)
  1. REMODULIN [Suspect]
     Active Substance: TREPROSTINIL
  2. MINI SPIKE DISP PIN [DEVICE] [Suspect]
     Active Substance: DEVICE
     Indication: PULMONARY ARTERIAL HYPERTENSION
     Dosage: ?          OTHER DOSE:11.30NG/KG;OTHER FREQUENCY:CONTINUOUS ;?
     Route: 058
     Dates: start: 20210120

REACTIONS (2)
  - Pain in extremity [None]
  - Device leakage [None]
